FAERS Safety Report 25875027 (Version 3)
Quarter: 2025Q4

REPORT INFORMATION
  Report Type: Spontaneous
  Country: EU (occurrence: EU)
  Receive Date: 20251003
  Receipt Date: 20251118
  Transmission Date: 20260118
  Serious: Yes (Life-Threatening, Hospitalization, Other)
  Sender: AMGEN
  Company Number: EU-BAXTER-2025BAX021641

PATIENT
  Age: 52 Year
  Sex: Female
  Weight: 86 kg

DRUGS (8)
  1. BEVACIZUMAB [Suspect]
     Active Substance: BEVACIZUMAB
     Indication: Fallopian tube cancer
     Dosage: 10 MG/KG, EVERY 2 WK
     Route: 040
     Dates: start: 20250821, end: 20250918
  2. BEVACIZUMAB [Suspect]
     Active Substance: BEVACIZUMAB
     Dosage: 10 MG/KG, EVERY 2 WK
     Route: 040
     Dates: start: 20251016
  3. DOXORUBICIN HYDROCHLORIDE [Suspect]
     Active Substance: DOXORUBICIN HYDROCHLORIDE
     Indication: Fallopian tube cancer
     Dosage: 59 MG 30 MG/M2; LAST DOSE ADMINISTERED PRIOR EVENT ONSET WAS ON 16 OCT 2025, C3D1, EVERY 4 WEEKS
     Route: 040
     Dates: start: 20250821
  4. DOXORUBICIN HYDROCHLORIDE [Suspect]
     Active Substance: DOXORUBICIN HYDROCHLORIDE
     Dosage: 59 MG 30 MG/M2; LAST DOSE ADMINISTERED PRIOR EVENT ONSET WAS ON 16 OCT 2025, C3D1, EVERY 4 WEEKS
     Route: 040
     Dates: start: 20250821
  5. MIRVETUXIMAB SORAVTANSINE [Suspect]
     Active Substance: MIRVETUXIMAB SORAVTANSINE
     Indication: Fallopian tube cancer
     Dosage: UNK (DRUG NOT ADMINISTERED)
     Route: 065
  6. CARBOPLATIN [Suspect]
     Active Substance: CARBOPLATIN
     Indication: Fallopian tube cancer
     Dosage: 794 MG, EVERY 4 WK
     Route: 040
     Dates: start: 20250821, end: 20250918
  7. CARBOPLATIN [Suspect]
     Active Substance: CARBOPLATIN
     Dosage: 618 MILLIGRAM, Q4WK
     Route: 040
     Dates: start: 20251016
  8. PEGFILGRASTIM [Concomitant]
     Active Substance: PEGFILGRASTIM
     Indication: Prophylaxis
     Dosage: 6 MG 1 DAY AFTER CHEMOTHERAPY
     Route: 065
     Dates: start: 20251002

REACTIONS (5)
  - Neutropenia [Recovered/Resolved]
  - Thrombocytopenia [Recovered/Resolved]
  - Thrombocytopenia [Recovered/Resolved]
  - Epistaxis [Unknown]
  - Thrombocytopenia [Recovered/Resolved]

NARRATIVE: CASE EVENT DATE: 20250904
